FAERS Safety Report 4320043-6 (Version None)
Quarter: 2004Q1

REPORT INFORMATION
  Report Type: 
  Country: None (occurrence: None)
  Receive Date: 20040315
  Receipt Date: 20040304
  Transmission Date: 20041129
  Serious: Yes (Hospitalization)
  Sender: FDA-Public Use
  Company Number: US-JNJFOC-20040301409

PATIENT
  Age: 66 Year
  Sex: Female

DRUGS (12)
  1. DURAGESIC [Suspect]
     Indication: PAIN
     Dosage: 25 UG/HR, 1 IN 72 HOUR, TRANSDERMAL; SEE IMAGE
     Route: 062
     Dates: start: 20031210, end: 20040106
  2. DURAGESIC [Suspect]
     Indication: PAIN
     Dosage: 25 UG/HR, 1 IN 72 HOUR, TRANSDERMAL; SEE IMAGE
     Route: 062
     Dates: start: 20040106
  3. PROZAC [Concomitant]
  4. WELLBUTRIN [Concomitant]
  5. BEXTRA [Concomitant]
  6. TRANXENE [Concomitant]
  7. SKELAXIN [Concomitant]
  8. SINGULAR (MONTELUKAST SODIUM) [Concomitant]
  9. AMBIEN (ZOLIPDEM TARTRATE) [Concomitant]
  10. DARVOCET (PROPACET) [Concomitant]
  11. SERAQUEL (ALL OTHER THERAPEUTIC PRODUCTS) [Concomitant]
  12. QUETIAPINE FUMARATE [Concomitant]

REACTIONS (4)
  - DIARRHOEA [None]
  - OEDEMA PERIPHERAL [None]
  - PNEUMONIA [None]
  - WEIGHT DECREASED [None]
